FAERS Safety Report 7982636 (Version 2)
Quarter: 2012Q4

REPORT INFORMATION
  Report Type: 
  Country: CA (occurrence: CA)
  Receive Date: 20110609
  Receipt Date: 20121111
  Transmission Date: 20130627
  Serious: Yes (Hospitalization, Other)
  Sender: FDA-Public Use
  Company Number: PHMT2006CA00911

PATIENT
  Sex: Female

DRUGS (10)
  1. SANDOSTATIN LAR [Suspect]
     Indication: CARCINOID TUMOUR
     Dosage: 20 mg every 4 weeks
     Route: 030
     Dates: start: 20040910
  2. SANDOSTATIN LAR [Suspect]
     Dosage: 20 mg every 25 days
     Route: 030
  3. MORPHINE SULFATE [Concomitant]
  4. MSIR [Concomitant]
     Dosage: 220 mg,
  5. MORPHINE [Concomitant]
  6. OXYCONTIN [Concomitant]
  7. ANTIINFLAMMATORY/ANTIRHEUMATIC PRODUCTS [Concomitant]
  8. FENTANYL [Concomitant]
  9. IRON IN OTHER COMBINATIONS [Concomitant]
  10. M-ESLON [Concomitant]

REACTIONS (33)
  - Bone disorder [Unknown]
  - Synovial cyst [Unknown]
  - Bone pain [Not Recovered/Not Resolved]
  - Hypotension [Unknown]
  - Blood pressure diastolic decreased [Unknown]
  - Blood pressure decreased [Unknown]
  - Blood urine present [Unknown]
  - Oedema [Unknown]
  - Oedema peripheral [Not Recovered/Not Resolved]
  - Localised oedema [Not Recovered/Not Resolved]
  - Joint range of motion decreased [Unknown]
  - Movement disorder [Unknown]
  - Musculoskeletal chest pain [Unknown]
  - Chest pain [Unknown]
  - Back pain [Not Recovered/Not Resolved]
  - Pain [Recovering/Resolving]
  - Hot flush [Unknown]
  - Gastrointestinal pain [Not Recovered/Not Resolved]
  - Melaena [Unknown]
  - Neck pain [Unknown]
  - Haemorrhoids [Unknown]
  - Laceration [Unknown]
  - Nasopharyngitis [Unknown]
  - Fatigue [Unknown]
  - Hypersomnia [Unknown]
  - Insomnia [Unknown]
  - Nausea [Unknown]
  - Hyperglycaemia [Unknown]
  - Hypoglycaemia [Unknown]
  - Constipation [Unknown]
  - Abdominal pain [Unknown]
  - Diarrhoea [Unknown]
  - Headache [Unknown]
